FAERS Safety Report 7877700-4 (Version None)
Quarter: 2011Q4

REPORT INFORMATION
  Report Type: 
  Country: None (occurrence: None)
  Receive Date: 20111031
  Receipt Date: 20111031
  Transmission Date: 20120403
  Serious: Yes (Hospitalization, Other)
  Sender: FDA-Public Use
  Company Number: None

PATIENT
  Age: 19 Year
  Sex: Male
  Weight: 81.646 kg

DRUGS (1)
  1. ZOLPIDEM [Suspect]
     Indication: INSOMNIA
     Dosage: ONE TABLET
     Route: 048
     Dates: start: 20110825, end: 20110825

REACTIONS (5)
  - INTENTIONAL SELF-INJURY [None]
  - ABNORMAL BEHAVIOUR [None]
  - AGITATION [None]
  - AGGRESSION [None]
  - CRIME [None]
